FAERS Safety Report 25137148 (Version 1)
Quarter: 2025Q1

REPORT INFORMATION
  Report Type: Report from Study
  Country: IE (occurrence: IE)
  Receive Date: 20250329
  Receipt Date: 20250329
  Transmission Date: 20250409
  Serious: Yes (Other)
  Sender: ABBVIE
  Company Number: IE-ABBVIE-6196359

PATIENT
  Age: 19 Year
  Sex: Male
  Weight: 57 kg

DRUGS (1)
  1. HUMIRA [Suspect]
     Active Substance: ADALIMUMAB
     Indication: Colitis ulcerative
     Route: 058
     Dates: start: 20240430

REACTIONS (3)
  - Limb mass [Unknown]
  - Localised infection [Unknown]
  - Limb mass [Not Recovered/Not Resolved]

NARRATIVE: CASE EVENT DATE: 20250101
